FAERS Safety Report 6185680-5 (Version None)
Quarter: 2009Q2

REPORT INFORMATION
  Report Type: 
  Country: None (occurrence: None)
  Receive Date: 20090511
  Receipt Date: 20090508
  Transmission Date: 20091009
  Serious: Yes (Life-Threatening, Other)
  Sender: FDA-Public Use
  Company Number: PHHY2009JP17682

PATIENT
  Age: 40 Year
  Sex: Male

DRUGS (3)
  1. TEGRETOL [Suspect]
     Indication: EPILEPSY
     Dosage: 100 MG/DAY
     Route: 048
     Dates: start: 20090501, end: 20090503
  2. ALEVIATIN [Concomitant]
     Indication: EPILEPSY
     Dosage: 250 MG, UNK
     Route: 048
     Dates: start: 20080101, end: 20090503
  3. TEMODAL [Concomitant]
     Dosage: 300 MG/DAY
     Route: 048
     Dates: start: 20090403, end: 20090407

REACTIONS (3)
  - GAMMA-GLUTAMYLTRANSFERASE INCREASED [None]
  - HEPATITIS FULMINANT [None]
  - RENAL FAILURE [None]
